FAERS Safety Report 7845520-2 (Version None)
Quarter: 2011Q4

REPORT INFORMATION
  Report Type: 
  Country: None (occurrence: None)
  Receive Date: 20111018
  Receipt Date: 20111013
  Transmission Date: 20120403
  Serious: Yes (Life-Threatening)
  Sender: FDA-Public Use
  Company Number: 2011SP048465

PATIENT
  Age: 63 Year
  Sex: Male
  Weight: 86 kg

DRUGS (10)
  1. LANSOPRAZOLE [Concomitant]
  2. TOPLEXIL [Concomitant]
  3. PEGASYS [Concomitant]
  4. VICTRELIS [Suspect]
     Indication: HEPATITIS C
     Dosage: 4 DF;TID
     Dates: start: 20110509
  5. NEORECORMON [Concomitant]
  6. VIRAFERONPEG [Suspect]
     Indication: HEPATITIS C
     Dosage: 120 MCG;QW;SC ; 100 MCG;QW;SC
     Route: 058
     Dates: start: 20110330
  7. VIRAFERONPEG [Suspect]
     Indication: HEPATITIS C
     Dosage: 120 MCG;QW;SC ; 100 MCG;QW;SC
     Route: 058
     Dates: start: 20110915
  8. COPEGUS [Suspect]
     Indication: HEPATITIS C
     Dosage: 400 MG;TID ; 200 MG;BID
     Dates: start: 20110330
  9. COPEGUS [Suspect]
     Indication: HEPATITIS C
     Dosage: 400 MG;TID ; 200 MG;BID
     Dates: start: 20110811
  10. MICONAZOLE [Concomitant]

REACTIONS (5)
  - SYNOVIAL CYST [None]
  - SUBCUTANEOUS ABSCESS [None]
  - DIFFUSE LARGE B-CELL LYMPHOMA [None]
  - PHARYNGEAL DISORDER [None]
  - INFECTED LYMPHOCELE [None]
